FAERS Safety Report 8301514-4 (Version None)
Quarter: 2012Q2

REPORT INFORMATION
  Report Type: 
  Country: None (occurrence: None)
  Receive Date: 20120420
  Receipt Date: 20120418
  Transmission Date: 20120825
  Serious: Yes (Hospitalization)
  Sender: FDA-Public Use
  Company Number: PHHY2012CH033227

PATIENT
  Age: 90 Year
  Sex: Male

DRUGS (8)
  1. SINTROM [Concomitant]
  2. NEBIVOLOL HCL [Concomitant]
  3. FLUTICASONE PROPIONATE/SALMETEROL [Concomitant]
  4. METFORMIN HCL [Suspect]
     Dosage: 850 MG,
     Route: 048
     Dates: end: 20120129
  5. TORSEMIDE [Concomitant]
  6. LORAZEPAM [Concomitant]
  7. CO-EPRIL [Concomitant]
  8. DIGOXIN [Concomitant]

REACTIONS (6)
  - CARDIAC FAILURE CONGESTIVE [None]
  - DYSPNOEA [None]
  - LACTIC ACIDOSIS [None]
  - COUGH [None]
  - RESPIRATORY TRACT INFECTION [None]
  - RENAL IMPAIRMENT [None]
